FAERS Safety Report 21559986 (Version 1)
Quarter: 2022Q4

REPORT INFORMATION
  Report Type: Spontaneous
  Country: GB (occurrence: GB)
  Receive Date: 20221107
  Receipt Date: 20221107
  Transmission Date: 20230113
  Serious: Yes (Other)
  Sender: FDA-Public Use
  Company Number: GB-MHRA-MED-202210282138197280-MPRWF

PATIENT
  Age: 28 Year
  Sex: Female

DRUGS (3)
  1. ONDANSETRON [Suspect]
     Active Substance: ONDANSETRON
     Indication: Hyperemesis gravidarum
     Dosage: UNK (4MG UP TO 3 TIMES A DAY, 8 HOUR INTERVALS; ;)
     Route: 065
     Dates: start: 20221026
  2. CYCLIZINE [Concomitant]
     Active Substance: CYCLIZINE
     Indication: Hyperemesis gravidarum
     Dosage: UNK
     Route: 065
  3. FOLIC ACID [Concomitant]
     Active Substance: FOLIC ACID
     Indication: Vitamin supplementation
     Dosage: 400 UG
     Route: 065

REACTIONS (2)
  - Blindness transient [Recovered/Resolved]
  - Maternal exposure during pregnancy [Unknown]

NARRATIVE: CASE EVENT DATE: 20221027
